FAERS Safety Report 8494247-5 (Version None)
Quarter: 2012Q3

REPORT INFORMATION
  Report Type: 
  Country: None (occurrence: None)
  Receive Date: 20120709
  Receipt Date: 20120705
  Transmission Date: 20120928
  Serious: Yes (Death, Hospitalization)
  Sender: FDA-Public Use
  Company Number: PHHY2010CA86871

PATIENT
  Sex: Male

DRUGS (4)
  1. ZOMETA [Suspect]
     Indication: PROSTATE CANCER
     Dosage: 3.5 MG EVERY12 WEEKS
     Route: 042
     Dates: start: 20101216
  2. ZOMETA [Suspect]
     Dosage: 4 MG, EVERY 3 MONTHS
     Route: 042
  3. STEROIDS NOS [Concomitant]
  4. ZOMETA [Suspect]
     Dosage: 3.3 MG EVERY 12 WEEKS
     Route: 042

REACTIONS (12)
  - DEHYDRATION [None]
  - BLOOD PRESSURE DECREASED [None]
  - HEART RATE DECREASED [None]
  - BLOOD SODIUM DECREASED [None]
  - SKIN ATROPHY [None]
  - NEOPLASM MALIGNANT [None]
  - SKIN DISORDER [None]
  - NEOPLASM PROGRESSION [None]
  - FALL [None]
  - CONTUSION [None]
  - MUSCULAR WEAKNESS [None]
  - WOUND [None]
